FAERS Safety Report 11310415 (Version 2)
Quarter: 2015Q3

REPORT INFORMATION
  Report Type: Spontaneous
  Country: GB (occurrence: GB)
  Receive Date: 20150724
  Receipt Date: 20150813
  Transmission Date: 20151125
  Serious: Yes (Other)
  Sender: FDA-Public Use
  Company Number: GB-ABBVIE-15P-167-1432906-00

PATIENT
  Age: 75 Year
  Sex: Male

DRUGS (4)
  1. OMEGA 3 FISH OIL [Concomitant]
     Active Substance: FISH OIL\OMEGA-3 FATTY ACIDS
     Indication: PRODUCT USED FOR UNKNOWN INDICATION
     Dosage: DAILY ROUTINE
     Route: 048
  2. CLARITHROMYCIN. [Suspect]
     Active Substance: CLARITHROMYCIN
     Indication: TOOTH ABSCESS
     Route: 048
     Dates: start: 20150227, end: 20150306
  3. METRONIDAZOLE. [Concomitant]
     Active Substance: METRONIDAZOLE
     Indication: TOOTH ABSCESS
     Dosage: 400 MG
     Route: 048
     Dates: start: 20150227, end: 20150304
  4. ANTI INFLAMMATORY [Concomitant]
     Indication: PRODUCT USED FOR UNKNOWN INDICATION
     Dosage: DAILY ROUTINE
     Route: 048

REACTIONS (3)
  - Tongue disorder [Recovered/Resolved]
  - Tongue discolouration [Recovered/Resolved]
  - Dyspepsia [Recovered/Resolved]

NARRATIVE: CASE EVENT DATE: 20150306
